FAERS Safety Report 17801597 (Version 2)
Quarter: 2020Q3

REPORT INFORMATION
  Report Type: Report from Study
  Country: US (occurrence: US)
  Receive Date: 20200519
  Receipt Date: 20200705
  Transmission Date: 20201102
  Serious: Yes (Other)
  Sender: FDA-Public Use
  Company Number: US-BIOGEN-2020BI00873885

PATIENT
  Age: 3 Year
  Sex: Male

DRUGS (1)
  1. SPINRAZA [Suspect]
     Active Substance: NUSINERSEN
     Indication: SPINAL MUSCULAR ATROPHY
     Route: 065
     Dates: start: 20170329

REACTIONS (5)
  - Post procedural swelling [Recovered/Resolved]
  - Encephalitis [Not Recovered/Not Resolved]
  - Pyrexia [Recovered/Resolved]
  - Lymphangitis [Not Recovered/Not Resolved]
  - Post procedural erythema [Recovered/Resolved]

NARRATIVE: CASE EVENT DATE: 20200507
